FAERS Safety Report 18835539 (Version 1)
Quarter: 2021Q1

REPORT INFORMATION
  Report Type: Spontaneous
  Country: JP (occurrence: JP)
  Receive Date: 20210203
  Receipt Date: 20210203
  Transmission Date: 20210419
  Serious: Yes (Hospitalization, Other)
  Sender: FDA-Public Use
  Company Number: JP-TAKEDA-2020TUS059959

PATIENT
  Age: 3 Decade
  Sex: Male

DRUGS (1)
  1. LIALDA [Suspect]
     Active Substance: MESALAMINE
     Indication: PRODUCT USED FOR UNKNOWN INDICATION
     Dosage: 4800 MILLIGRAM, QD
     Route: 048
     Dates: start: 20201005, end: 202010

REACTIONS (2)
  - Myocarditis [Recovering/Resolving]
  - Pleuropericarditis [Recovering/Resolving]

NARRATIVE: CASE EVENT DATE: 202010
